FAERS Safety Report 8882383 (Version 2)
Quarter: 2012Q4

REPORT INFORMATION
  Report Type: 
  Country: US (occurrence: US)
  Receive Date: 20121105
  Receipt Date: 20121219
  Transmission Date: 20130627
  Serious: Yes (Other)
  Sender: FDA-Public Use
  Company Number: CHPA2012US022593

PATIENT
  Age: 80 Year
  Sex: Male

DRUGS (5)
  1. GAS-X [Suspect]
     Indication: FLATULENCE
     Dosage: 6 DF per day, as needed
     Route: 048
  2. GAS-X [Suspect]
     Dosage: 4 DF per day, as needed
     Route: 048
     Dates: start: 2010
  3. COMAX /00086101/ [Suspect]
     Dosage: UNK
     Dates: start: 20120926, end: 20121024
  4. PROSCAR [Concomitant]
     Dosage: UNK
     Dates: start: 201208, end: 20121025
  5. FLOMAX ^BOEHRINGER INGELHEIM^ [Concomitant]
     Dosage: UNK
     Dates: start: 201208, end: 20121025

REACTIONS (4)
  - Prostate cancer [Not Recovered/Not Resolved]
  - Gastrointestinal stoma complication [Not Recovered/Not Resolved]
  - Drug ineffective [Unknown]
  - Prescribed overdose [Unknown]
